FAERS Safety Report 10185862 (Version 1)
Quarter: 2014Q2

REPORT INFORMATION
  Report Type: Spontaneous
  Country: US (occurrence: US)
  Receive Date: 20140521
  Receipt Date: 20140521
  Transmission Date: 20141212
  Serious: Yes (Other)
  Sender: FDA-Public Use
  Company Number: US-BAYER-2014-071097

PATIENT
  Age: 76 Year
  Sex: Male

DRUGS (7)
  1. PHILLIPS^ MILK OF MAGNESIA LIQUID ORIGINAL [Suspect]
     Indication: CONSTIPATION
     Dosage: UNK
     Route: 048
  2. HYDROCODONE/ACETAMINOPHEN [Concomitant]
     Dosage: UNK
  3. AMLODIPINE [Concomitant]
     Dosage: UNK
  4. ATENOLOL [Concomitant]
  5. SIMVASTATIN [Concomitant]
  6. ALERTEC [Concomitant]
  7. VIAGRA [Concomitant]

REACTIONS (3)
  - Sudden onset of sleep [None]
  - Intentional product misuse [None]
  - Drug ineffective [None]
